FAERS Safety Report 16624311 (Version 1)
Quarter: 2019Q3

REPORT INFORMATION
  Report Type: Spontaneous
  Country: US (occurrence: US)
  Receive Date: 20190724
  Receipt Date: 20190724
  Transmission Date: 20191004
  Serious: Yes (Hospitalization)
  Sender: FDA-Public Use
  Company Number: US-ROCHE-2356452

PATIENT
  Sex: Male

DRUGS (1)
  1. OCREVUS [Suspect]
     Active Substance: OCRELIZUMAB
     Indication: RELAPSING MULTIPLE SCLEROSIS
     Route: 065
     Dates: start: 20171004

REACTIONS (4)
  - Lip swelling [Recovering/Resolving]
  - Scratch [Recovering/Resolving]
  - Facial bones fracture [Recovering/Resolving]
  - Arthropathy [Recovering/Resolving]
